FAERS Safety Report 24548771 (Version 1)
Quarter: 2024Q4

REPORT INFORMATION
  Report Type: Spontaneous
  Country: JP (occurrence: JP)
  Receive Date: 20241025
  Receipt Date: 20241025
  Transmission Date: 20250115
  Serious: Yes (Hospitalization, Other)
  Sender: PFIZER
  Company Number: JP-PFIZER INC-PV202400136397

PATIENT
  Age: 60 Year
  Sex: Female
  Weight: 62.2 kg

DRUGS (17)
  1. PACLITAXEL [Suspect]
     Active Substance: PACLITAXEL
     Indication: Breast cancer female
     Dosage: UNK, COMBINATION THERAPY WITH BEVACIZUMAB
     Route: 042
     Dates: start: 20240725, end: 20240725
  2. BEVACIZUMAB [Suspect]
     Active Substance: BEVACIZUMAB
     Indication: Breast cancer female
     Dosage: UNK, COMBINATION THERAPY WITH PACLITAXEL
     Route: 042
     Dates: start: 20240725, end: 20240725
  3. SYMPROIC [Concomitant]
     Active Substance: NALDEMEDINE
     Dosage: UNK
     Route: 048
  4. HYDROMORPHONE HYDROCHLORIDE [Concomitant]
     Active Substance: HYDROMORPHONE HYDROCHLORIDE
     Dosage: UNK
     Route: 048
  5. VONOPRAZAN FUMARATE [Concomitant]
     Active Substance: VONOPRAZAN FUMARATE
     Dosage: UNK
     Route: 048
  6. FEBUXOSTAT [Concomitant]
     Active Substance: FEBUXOSTAT
     Dosage: UNK, ^JG^
     Route: 048
  7. URSODIOL [Concomitant]
     Active Substance: URSODIOL
     Dosage: UNK, ^JG^
     Route: 048
  8. CALCIUM SENNOSIDES [Concomitant]
     Active Substance: SENNOSIDES
     Dosage: UNK, ^NIG^
     Route: 048
  9. TRAVELMIN [DIPHENHYDRAMINE HYDROCHLORIDE;DIPROPHYLLINE] [Concomitant]
     Dosage: UNK
     Route: 048
  10. VALSARTAN [Concomitant]
     Active Substance: VALSARTAN
     Dosage: UNK, ^NISSIN^
     Route: 048
  11. HYDROMORPHONE HYDROCHLORIDE [Concomitant]
     Active Substance: HYDROMORPHONE HYDROCHLORIDE
     Dosage: UNK
     Route: 048
  12. SODIUM CHLORIDE [Concomitant]
     Active Substance: SODIUM CHLORIDE
     Dosage: UNK
     Route: 042
     Dates: start: 20240725, end: 20240725
  13. DEXAMETHASONE SODIUM PHOSPHATE [Concomitant]
     Active Substance: DEXAMETHASONE SODIUM PHOSPHATE
     Dosage: STRENGTH: 1.65 MG/6.6 MG
     Route: 042
     Dates: start: 20240725, end: 20240725
  14. GASTER [Concomitant]
     Active Substance: FAMOTIDINE
     Dosage: UNK
     Route: 042
     Dates: start: 20240725, end: 20240725
  15. DIPHENHYDRAMINE [Concomitant]
     Active Substance: DIPHENHYDRAMINE
     Dosage: UNK
     Route: 048
     Dates: start: 20240725, end: 20240725
  16. YD SOLITA T NO.1 [Concomitant]
     Dosage: 200 ML
     Route: 042
     Dates: start: 20240729
  17. PRIMPERAN [Concomitant]
     Active Substance: METOCLOPRAMIDE HYDROCHLORIDE
     Dosage: 10 MG
     Route: 042
     Dates: start: 20240729

REACTIONS (6)
  - Febrile neutropenia [Recovered/Resolved]
  - Hepatic enzyme increased [Unknown]
  - White blood cell count decreased [Recovering/Resolving]
  - C-reactive protein increased [Recovered/Resolved]
  - Haemoglobin decreased [Not Recovered/Not Resolved]
  - Platelet count decreased [Recovering/Resolving]

NARRATIVE: CASE EVENT DATE: 20240725
